FAERS Safety Report 4818192-9 (Version None)
Quarter: 2005Q4

REPORT INFORMATION
  Report Type: 
  Country: None (occurrence: None)
  Receive Date: 20051101
  Receipt Date: 20051101
  Transmission Date: 20060501
  Serious: Yes (Hospitalization)
  Sender: FDA-Public Use
  Company Number: None

PATIENT
  Sex: Male
  Weight: 78.4723 kg

DRUGS (11)
  1. CLOZAPINE [Suspect]
     Indication: BIPOLAR DISORDER
     Dosage: 300 MG   DAILY  PO
     Route: 048
     Dates: start: 20050903, end: 20051029
  2. APAP TAB [Concomitant]
  3. AMOXICILLIN AND CLAVULANATE POTASSIUM [Concomitant]
  4. DIVALPROEX SODIUM [Concomitant]
  5. DOCUSTAE [Concomitant]
  6. DOXYCYCLINE [Concomitant]
  7. IBUPROFEN [Concomitant]
  8. ISONIAZID [Concomitant]
  9. MAALOX PLUS [Concomitant]
  10. MILK OF MAGNESIUM [Concomitant]
  11. PYRIDOXINE HCL [Concomitant]

REACTIONS (2)
  - LOBAR PNEUMONIA [None]
  - PULMONARY EMBOLISM [None]
